FAERS Safety Report 18093254 (Version 1)
Quarter: 2020Q3

REPORT INFORMATION
  Report Type: Spontaneous
  Country: CN (occurrence: CN)
  Receive Date: 20200730
  Receipt Date: 20200730
  Transmission Date: 20201103
  Serious: Yes (Hospitalization, Other)
  Sender: FDA-Public Use
  Company Number: CN-JNJFOC-20200726708

PATIENT
  Age: 33 Year
  Sex: Female
  Weight: 74 kg

DRUGS (2)
  1. REMICADE [Suspect]
     Active Substance: INFLIXIMAB
     Indication: CROHN^S DISEASE
  2. REMICADE [Suspect]
     Active Substance: INFLIXIMAB
     Indication: IMMUNOSUPPRESSION
     Route: 042
     Dates: end: 20200701

REACTIONS (7)
  - Dizziness [Recovering/Resolving]
  - Crohn^s disease [Unknown]
  - Infusion site swelling [Recovering/Resolving]
  - Throat irritation [Recovering/Resolving]
  - Infusion related reaction [Recovering/Resolving]
  - Infusion site pain [Recovering/Resolving]
  - Retching [Recovering/Resolving]

NARRATIVE: CASE EVENT DATE: 20200701
